FAERS Safety Report 20153069 (Version 1)
Quarter: 2021Q4

REPORT INFORMATION
  Report Type: Spontaneous
  Country: None (occurrence: US)
  Receive Date: 20211206
  Receipt Date: 20211206
  Transmission Date: 20220303
  Serious: No
  Sender: FDA-Public Use
  Company Number: US-Nexgen Pharma, Inc.-2122717

PATIENT
  Age: 39 Year
  Sex: Female

DRUGS (3)
  1. CHENODAL [Suspect]
     Active Substance: CHENODIOL
     Indication: Cholecystitis acute
     Route: 048
     Dates: start: 20210422
  2. Allergy Shots, Unspecified [Concomitant]
     Route: 065
  3. Steroids, Unspecified [Concomitant]
     Route: 065

REACTIONS (2)
  - Urticaria [None]
  - Pruritus [None]
